FAERS Safety Report 4981793-1 (Version None)
Quarter: 2006Q2

REPORT INFORMATION
  Report Type: 
  Country: None (occurrence: None)
  Receive Date: 20060425
  Receipt Date: 20060419
  Transmission Date: 20061013
  Serious: Yes (Other)
  Sender: FDA-Public Use
  Company Number: BR-GLAXOSMITHKLINE-A0602851A

PATIENT
  Age: 53 Year
  Sex: Female
  Weight: 72 kg

DRUGS (3)
  1. SERETIDE [Suspect]
     Indication: PULMONARY FIBROSIS
     Route: 055
     Dates: start: 20060405, end: 20060410
  2. PREDNISONE [Concomitant]
     Dates: start: 20040101
  3. BROMAZEPAM [Concomitant]
     Dates: start: 20030101

REACTIONS (4)
  - CONVULSION [None]
  - FATIGUE [None]
  - NERVOUSNESS [None]
  - TREMOR [None]
